FAERS Safety Report 12073623 (Version 5)
Quarter: 2019Q2

REPORT INFORMATION
  Report Type: Spontaneous
  Country: US (occurrence: US)
  Receive Date: 20160212
  Receipt Date: 20190416
  Transmission Date: 20190711
  Serious: Yes (Hospitalization)
  Sender: FDA-Public Use
  Company Number: US-JNJFOC-20160205808

PATIENT
  Age: 29 Year
  Sex: Female

DRUGS (1)
  1. XARELTO [Suspect]
     Active Substance: RIVAROXABAN
     Indication: ANTIPHOSPHOLIPID SYNDROME
     Dosage: 15 MG AND 20 MG
     Route: 048
     Dates: start: 20130104, end: 20130202

REACTIONS (4)
  - Adrenal haemorrhage [Unknown]
  - Off label use [Unknown]
  - Cardiomegaly [Unknown]
  - Product use in unapproved indication [Unknown]

NARRATIVE: CASE EVENT DATE: 20130113
